FAERS Safety Report 12383764 (Version 4)
Quarter: 2016Q2

REPORT INFORMATION
  Report Type: Spontaneous
  Country: FR (occurrence: FR)
  Receive Date: 20160519
  Receipt Date: 20160617
  Transmission Date: 20160815
  Serious: Yes (Death, Life-Threatening, Hospitalization, Other)
  Sender: FDA-Public Use
  Company Number: FR-ROCHE-1757883

PATIENT
  Age: 81 Year
  Sex: Female

DRUGS (10)
  1. LUCENTIS [Suspect]
     Active Substance: RANIBIZUMAB
     Dosage: SECOND INJECTION
     Route: 050
     Dates: start: 20160426, end: 20160426
  2. LANSOPRAZOLE. [Concomitant]
     Active Substance: LANSOPRAZOLE
     Indication: PRODUCT USED FOR UNKNOWN INDICATION
     Route: 065
  3. LEVOTHYROX [Concomitant]
     Active Substance: LEVOTHYROXINE
     Indication: PRODUCT USED FOR UNKNOWN INDICATION
     Dosage: UNK
     Route: 065
  4. LASILIX [Concomitant]
     Active Substance: FUROSEMIDE
     Indication: PRODUCT USED FOR UNKNOWN INDICATION
     Dosage: 60 MG, QD
     Route: 065
  5. METFORMIN [Concomitant]
     Active Substance: METFORMIN HYDROCHLORIDE
     Indication: PRODUCT USED FOR UNKNOWN INDICATION
     Dosage: UNK
     Route: 065
  6. KARDEGIC [Concomitant]
     Active Substance: ASPIRIN LYSINE
     Indication: PRODUCT USED FOR UNKNOWN INDICATION
     Dosage: 75 MG, QD
     Route: 065
  7. LUCENTIS [Suspect]
     Active Substance: RANIBIZUMAB
     Indication: DIABETIC RETINAL OEDEMA
     Dosage: FIRST INJECTION
     Route: 050
     Dates: start: 20160401, end: 20160401
  8. AMLOR [Concomitant]
     Active Substance: AMLODIPINE BESYLATE
     Indication: PRODUCT USED FOR UNKNOWN INDICATION
     Route: 065
  9. ATORVASTATIN [Concomitant]
     Active Substance: ATORVASTATIN
     Indication: PRODUCT USED FOR UNKNOWN INDICATION
     Route: 065
  10. BETADIN [Suspect]
     Active Substance: POVIDONE-IODINE
     Indication: STERILISATION
     Route: 065
     Dates: start: 20160329, end: 20160329

REACTIONS (14)
  - Rash [Recovering/Resolving]
  - Acute pulmonary oedema [Unknown]
  - Acute respiratory failure [Recovered/Resolved]
  - Anaphylactic shock [Recovering/Resolving]
  - Cardiac arrest [Unknown]
  - Blood pressure decreased [Recovering/Resolving]
  - Arrhythmia [Unknown]
  - Aortic stenosis [Fatal]
  - Malaise [Unknown]
  - Erythema [Recovered/Resolved]
  - Asthenia [Unknown]
  - Labile blood pressure [Unknown]
  - Loss of consciousness [Unknown]
  - Nocturnal dyspnoea [Unknown]

NARRATIVE: CASE EVENT DATE: 20160426
